FAERS Safety Report 8928466 (Version 1)
Quarter: 2012Q4

REPORT INFORMATION
  Report Type: 
  Country: BR (occurrence: BR)
  Receive Date: 20121128
  Receipt Date: 20121128
  Transmission Date: 20130627
  Serious: Yes (Hospitalization, Other)
  Sender: FDA-Public Use
  Company Number: PHHY2012BR107492

PATIENT
  Age: 78 Year
  Sex: Male
  Weight: 64 kg

DRUGS (4)
  1. DIOVAN HCT [Suspect]
     Indication: HYPERTENSION
     Dosage: 1 DF(160 mg vals and 12.5 mg), on morning
     Route: 048
  2. ADALAT [Concomitant]
     Indication: ARRHYTHMIA
     Dosage: 30 mg, every night
     Route: 048
  3. LABIRIN [Concomitant]
     Indication: LABYRINTHITIS
     Dosage: 2 DF, daily
  4. DORFLEX [Concomitant]
     Indication: PAIN
     Dosage: UNK UKN, PRN

REACTIONS (5)
  - Fall [Recovering/Resolving]
  - Skull fracture [Recovering/Resolving]
  - Eye injury [Recovering/Resolving]
  - Upper limb fracture [Recovered/Resolved]
  - Hypokinesia [Not Recovered/Not Resolved]
